FAERS Safety Report 5303369-9 (Version None)
Quarter: 2007Q2

REPORT INFORMATION
  Report Type: 
  Country: None (occurrence: None)
  Receive Date: 20070420
  Receipt Date: 20070411
  Transmission Date: 20071010
  Serious: Yes (Hospitalization)
  Sender: FDA-Public Use
  Company Number: US-JNJFOC-20070402651

PATIENT
  Sex: Female

DRUGS (8)
  1. DURAGESIC-100 [Suspect]
     Route: 062
  2. DURAGESIC-100 [Suspect]
     Route: 062
  3. DURAGESIC-100 [Suspect]
     Route: 062
  4. DURAGESIC-100 [Suspect]
     Route: 062
  5. DURAGESIC-100 [Suspect]
     Route: 062
  6. DURAGESIC-100 [Suspect]
     Indication: BACK PAIN
     Route: 062
  7. FENTANYL TRANSDERMAL SYSTEM [Suspect]
     Indication: ARTHRALGIA
     Route: 062
  8. FENTANYL TRANSDERMAL SYSTEM [Suspect]
     Indication: BACK PAIN
     Route: 062

REACTIONS (6)
  - INSOMNIA [None]
  - KNEE OPERATION [None]
  - MALAISE [None]
  - NAUSEA [None]
  - THROMBOSIS [None]
  - UNEVALUABLE EVENT [None]
